FAERS Safety Report 7014831-5 (Version None)
Quarter: 2010Q3

REPORT INFORMATION
  Report Type: 
  Country: None (occurrence: None)
  Receive Date: 20100927
  Receipt Date: 20100409
  Transmission Date: 20110219
  Serious: No
  Sender: FDA-Public Use
  Company Number: US-MYLANLABS-2010S1006033

PATIENT
  Age: 63 Year
  Sex: Female
  Weight: 90.27 kg

DRUGS (5)
  1. MINOXIDIL [Suspect]
     Indication: HYPERTENSION
     Dates: start: 20100301, end: 20100401
  2. FUROSEMIDE TABLETS, USP [Suspect]
     Indication: HYPERTENSION
     Route: 048
     Dates: start: 20100301, end: 20100301
  3. FUROSEMIDE TABLETS, USP [Suspect]
     Route: 048
     Dates: start: 20100301, end: 20100401
  4. BYSTOLIC [Concomitant]
     Indication: HYPERTENSION
     Dates: start: 20090101
  5. FELODIPINE [Concomitant]
     Indication: HYPERTENSION
     Dates: start: 20090101

REACTIONS (8)
  - ABDOMINAL DISTENSION [None]
  - ASTHENIA [None]
  - DYSPNOEA [None]
  - HAIR COLOUR CHANGES [None]
  - HYPOAESTHESIA [None]
  - JOINT SWELLING [None]
  - PALPITATIONS [None]
  - VISION BLURRED [None]
